FAERS Safety Report 18358799 (Version 1)
Quarter: 2020Q4

REPORT INFORMATION
  Report Type: Spontaneous
  Country: US (occurrence: US)
  Receive Date: 20201008
  Receipt Date: 20201008
  Transmission Date: 20210114
  Serious: No
  Sender: FDA-Public Use
  Company Number: US-DRREDDYS-USA/USA/20/0127464

PATIENT
  Age: 62 Year
  Sex: Female
  Weight: 62.1 kg

DRUGS (1)
  1. HABITROL [Suspect]
     Active Substance: NICOTINE
     Indication: TOBACCO USER
     Route: 062

REACTIONS (3)
  - Dermatitis contact [Unknown]
  - Application site pruritus [Unknown]
  - Application site erythema [Unknown]
